FAERS Safety Report 7571805-3 (Version None)
Quarter: 2011Q2

REPORT INFORMATION
  Report Type: 
  Country: None (occurrence: None)
  Receive Date: 20110624
  Receipt Date: 20110612
  Transmission Date: 20111010
  Serious: Yes (Hospitalization)
  Sender: FDA-Public Use
  Company Number: CA-ELI_LILLY_AND_COMPANY-CA201106003746

PATIENT
  Age: 70 Year
  Sex: Female

DRUGS (6)
  1. PREDNISONE [Concomitant]
  2. CRESTOR [Concomitant]
  3. FORTEO [Suspect]
     Indication: OSTEOPOROSIS
     Dosage: 20 UG, QD
     Route: 058
     Dates: start: 20110315
  4. SYNTHROID [Concomitant]
  5. CALCIUM + VITAMIN D [Concomitant]
  6. FLORINEF [Concomitant]

REACTIONS (2)
  - PAIN [None]
  - FALL [None]
